FAERS Safety Report 4321478-8 (Version None)
Quarter: 2004Q1

REPORT INFORMATION
  Report Type: 
  Country: None (occurrence: None)
  Receive Date: 20040322
  Receipt Date: 20030602
  Transmission Date: 20041129
  Serious: No
  Sender: FDA-Public Use
  Company Number: US-BRISTOL-MYERS SQUIBB COMPANY-12298493

PATIENT
  Age: 30 Year
  Sex: Female

DRUGS (5)
  1. MONISTAT [Suspect]
     Indication: VAGINAL MYCOSIS
     Route: 067
     Dates: start: 20030601, end: 20030601
  2. NEURONTIN [Concomitant]
  3. LAMICTAL [Concomitant]
  4. ZONEGRAN [Concomitant]
  5. KEPPRA [Concomitant]

REACTIONS (1)
  - LOCALISED OEDEMA [None]
